FAERS Safety Report 17298141 (Version 7)
Quarter: 2021Q1

REPORT INFORMATION
  Report Type: Other
  Country: US (occurrence: US)
  Receive Date: 20200122
  Receipt Date: 20210108
  Transmission Date: 20210419
  Serious: Yes (Life-Threatening, Hospitalization)
  Sender: FDA-Public Use
  Company Number: US-ROCHE-2522008

PATIENT
  Age: 70 Year
  Sex: Female

DRUGS (4)
  1. OCREVUS [Suspect]
     Active Substance: OCRELIZUMAB
     Route: 042
     Dates: start: 2018
  2. OCREVUS [Suspect]
     Active Substance: OCRELIZUMAB
     Indication: PRIMARY PROGRESSIVE MULTIPLE SCLEROSIS
     Route: 042
     Dates: start: 20190701
  3. LUCENTIS [Suspect]
     Active Substance: RANIBIZUMAB
     Indication: PRIMARY PROGRESSIVE MULTIPLE SCLEROSIS
     Route: 065
     Dates: start: 20190614
  4. OCREVUS [Suspect]
     Active Substance: OCRELIZUMAB
     Dosage: DATE OF TREATMENT = 28/JUN/2019, 10/FEB/2020
     Route: 042
     Dates: start: 20200614

REACTIONS (13)
  - Hiatus hernia [Not Recovered/Not Resolved]
  - Taste disorder [Unknown]
  - Bladder disorder [Unknown]
  - Appendicitis [Recovered/Resolved]
  - Intentional product use issue [Unknown]
  - Parosmia [Not Recovered/Not Resolved]
  - Hair colour changes [Unknown]
  - Drug ineffective [Unknown]
  - Depression [Recovered/Resolved]
  - Appendicitis perforated [Recovered/Resolved]
  - Colon gangrene [Recovered/Resolved]
  - Off label use [Unknown]
  - Alopecia [Recovered/Resolved]

NARRATIVE: CASE EVENT DATE: 201906
